FAERS Safety Report 24123051 (Version 1)
Quarter: 2024Q3

REPORT INFORMATION
  Report Type: Spontaneous
  Country: US (occurrence: US)
  Receive Date: 20240723
  Receipt Date: 20240723
  Transmission Date: 20241016
  Serious: No
  Sender: OTSUKA
  Company Number: US-OTSUKA-2024_017586

PATIENT
  Age: 18 Year
  Sex: Male

DRUGS (1)
  1. REXULTI [Suspect]
     Active Substance: BREXPIPRAZOLE
     Indication: Product used for unknown indication
     Dosage: 0.5 DF, BID (? TABLET TWICE A DAY)
     Route: 048
     Dates: end: 20240514

REACTIONS (2)
  - Petechiae [Recovering/Resolving]
  - Inappropriate schedule of product administration [Unknown]

NARRATIVE: CASE EVENT DATE: 20240401
